FAERS Safety Report 9433232 (Version 1)
Quarter: 2013Q3

REPORT INFORMATION
  Report Type: Spontaneous
  Country: US (occurrence: US)
  Receive Date: 20130731
  Receipt Date: 20130731
  Transmission Date: 20140515
  Serious: No
  Sender: FDA-Public Use
  Company Number: US-009507513-1307USA013471

PATIENT
  Age: 12 Year
  Sex: Female

DRUGS (1)
  1. COPPERTONE SENSITIVE SKIN LOTION SPF-50 [Suspect]
     Indication: PRODUCT USED FOR UNKNOWN INDICATION
     Dosage: UNK, UNKNOWN
     Route: 061
     Dates: start: 201304

REACTIONS (3)
  - Rash generalised [Recovering/Resolving]
  - Rash pruritic [Recovering/Resolving]
  - Rash papular [Recovering/Resolving]
